FAERS Safety Report 7328020-8 (Version None)
Quarter: 2011Q1

REPORT INFORMATION
  Report Type: 
  Country: None (occurrence: None)
  Receive Date: 20110303
  Receipt Date: 20110223
  Transmission Date: 20110831
  Serious: Yes (Other)
  Sender: FDA-Public Use
  Company Number: CA-JNJFOC-20100505159

PATIENT
  Sex: Female
  Weight: 76 kg

DRUGS (7)
  1. ASACOL [Concomitant]
  2. LIPITOR [Concomitant]
  3. PREDNISONE [Concomitant]
  4. DIURETIC [Concomitant]
     Indication: OEDEMA PERIPHERAL
  5. REMICADE [Suspect]
     Indication: COLITIS ULCERATIVE
     Route: 042
  6. REMICADE [Suspect]
     Dosage: DURATION ^TO PRESENT^
     Route: 042
  7. ACETAMINOPHEN [Concomitant]
     Indication: ARTHRITIS

REACTIONS (2)
  - ORTHOPNOEA [None]
  - COLITIS ULCERATIVE [None]
